FAERS Safety Report 7651572-5 (Version None)
Quarter: 2011Q3

REPORT INFORMATION
  Report Type: 
  Country: None (occurrence: None)
  Receive Date: 20110802
  Receipt Date: 20110727
  Transmission Date: 20111222
  Serious: Yes (Hospitalization)
  Sender: FDA-Public Use
  Company Number: JP-ABBOTT-11P-087-0840513-00

PATIENT
  Sex: Male
  Weight: 65 kg

DRUGS (2)
  1. HUMIRA [Suspect]
     Indication: PSORIASIS
     Route: 058
     Dates: start: 20100329, end: 20100329
  2. HUMIRA [Suspect]
     Dates: start: 20100412

REACTIONS (6)
  - ALANINE AMINOTRANSFERASE INCREASED [None]
  - BLOOD TRIGLYCERIDES INCREASED [None]
  - GAMMA-GLUTAMYLTRANSFERASE INCREASED [None]
  - ASPARTATE AMINOTRANSFERASE INCREASED [None]
  - BLOOD ALKALINE PHOSPHATASE INCREASED [None]
  - BLOOD CHOLESTEROL INCREASED [None]
